FAERS Safety Report 7776832-9 (Version None)
Quarter: 2011Q3

REPORT INFORMATION
  Report Type: 
  Country: None (occurrence: None)
  Receive Date: 20110926
  Receipt Date: 20110921
  Transmission Date: 20111222
  Serious: Yes (Hospitalization, Other)
  Sender: FDA-Public Use
  Company Number: JP-B.I. PHARMACEUTICALS,INC./RIDGEFIELD-2011-BP-22092NB

PATIENT
  Sex: Female
  Weight: 57.2 kg

DRUGS (8)
  1. CARVEDILOL [Concomitant]
     Indication: CARDIAC FAILURE CHRONIC
     Dosage: 1.25 MG
     Route: 048
     Dates: start: 20110730
  2. LANIRAPID [Concomitant]
     Indication: CARDIAC FAILURE CHRONIC
     Dosage: 0.05 MG
     Route: 048
     Dates: start: 20110730
  3. PRADAXA [Suspect]
     Indication: CEREBROVASCULAR ACCIDENT PROPHYLAXIS
     Dosage: 220 MG
     Route: 048
     Dates: start: 20110730, end: 20110822
  4. VERAPAMIL HCL [Concomitant]
     Indication: HEART RATE
     Dosage: 120 MG
     Route: 048
     Dates: start: 20110730
  5. ASPIRIN [Concomitant]
     Dosage: 100 MG
     Route: 048
  6. ALDACTONE [Concomitant]
     Indication: CARDIAC FAILURE CHRONIC
     Dosage: 25 MG
     Route: 048
     Dates: start: 20110730
  7. CANDESARTAN CILEXETIL [Concomitant]
     Indication: ESSENTIAL HYPERTENSION
     Dosage: 4 MG
     Route: 048
     Dates: start: 20110730
  8. LASIX [Concomitant]
     Indication: CARDIAC FAILURE CHRONIC
     Dosage: 60 MG
     Route: 048
     Dates: start: 20110730

REACTIONS (6)
  - GASTRIC HAEMORRHAGE [None]
  - GASTROINTESTINAL HAEMORRHAGE [None]
  - MELAENA [None]
  - SHOCK [None]
  - DUODENAL ULCER [None]
  - GASTRIC MUCOSAL LESION [None]
